FAERS Safety Report 9383835 (Version 1)
Quarter: 2013Q3

REPORT INFORMATION
  Report Type: Spontaneous
  Country: FR (occurrence: FR)
  Receive Date: 20130704
  Receipt Date: 20130704
  Transmission Date: 20140515
  Serious: Yes (Other)
  Sender: FDA-Public Use
  Company Number: FR-009507513-1307FRA000366

PATIENT
  Age: 90 Year
  Sex: Female

DRUGS (1)
  1. NOROXINE [Suspect]
     Dosage: 400 MG, QD
     Route: 048
     Dates: start: 20130627, end: 20130628

REACTIONS (4)
  - Loss of consciousness [Recovering/Resolving]
  - Fall [Recovering/Resolving]
  - Injury [Recovering/Resolving]
  - Somnolence [Recovering/Resolving]
